FAERS Safety Report 25690417 (Version 1)
Quarter: 2025Q3

REPORT INFORMATION
  Report Type: Report from Study
  Country: BR (occurrence: BR)
  Receive Date: 20250818
  Receipt Date: 20250818
  Transmission Date: 20251021
  Serious: Yes (Other)
  Sender: ROCHE
  Company Number: BR-ROCHE-10000364837

PATIENT

DRUGS (4)
  1. ATEZOLIZUMAB [Suspect]
     Active Substance: ATEZOLIZUMAB
     Indication: Lung neoplasm malignant
     Route: 065
  2. DURVALUMAB [Suspect]
     Active Substance: DURVALUMAB
     Indication: Lung neoplasm malignant
     Route: 065
  3. NIVOLUMAB [Suspect]
     Active Substance: NIVOLUMAB
     Indication: Lung neoplasm malignant
     Route: 065
  4. PEMBROLIZUMAB [Suspect]
     Active Substance: PEMBROLIZUMAB
     Indication: Lung neoplasm malignant
     Route: 065

REACTIONS (8)
  - Diarrhoea [Unknown]
  - Fatigue [Unknown]
  - Rash [Unknown]
  - Cough [Unknown]
  - Dyspnoea [Unknown]
  - Arthralgia [Unknown]
  - Myalgia [Unknown]
  - Pruritus [Unknown]
